FAERS Safety Report 23896051 (Version 5)
Quarter: 2024Q3

REPORT INFORMATION
  Report Type: Spontaneous
  Country: CA (occurrence: CA)
  Receive Date: 20240524
  Receipt Date: 20240823
  Transmission Date: 20241016
  Serious: Yes (Other)
  Sender: PFIZER
  Company Number: CA-PFIZER INC-PV202400048556

PATIENT
  Age: 42 Year
  Sex: Male
  Weight: 83.6 kg

DRUGS (9)
  1. ZIRABEV [Suspect]
     Active Substance: BEVACIZUMAB-BVZR
     Indication: Malignant glioma
     Dosage: 860 MG
     Dates: start: 20240327
  2. ZIRABEV [Suspect]
     Active Substance: BEVACIZUMAB-BVZR
     Indication: Glioblastoma
     Dosage: 860 MG
     Dates: start: 20240410
  3. ZIRABEV [Suspect]
     Active Substance: BEVACIZUMAB-BVZR
     Dosage: 860 MG
     Dates: start: 20240410
  4. ZIRABEV [Suspect]
     Active Substance: BEVACIZUMAB-BVZR
     Dosage: 860 MG
     Dates: start: 20240410
  5. ZIRABEV [Suspect]
     Active Substance: BEVACIZUMAB-BVZR
     Dosage: UNK
  6. ZIRABEV [Suspect]
     Active Substance: BEVACIZUMAB-BVZR
     Dosage: 860 MG, CYCLE 4V
     Route: 042
     Dates: start: 20240508
  7. ZIRABEV [Suspect]
     Active Substance: BEVACIZUMAB-BVZR
     Dosage: 860 MG
     Dates: start: 20240522, end: 20240522
  8. ZIRABEV [Suspect]
     Active Substance: BEVACIZUMAB-BVZR
     Dosage: 860 MG
     Dates: start: 20240605
  9. ZIRABEV [Suspect]
     Active Substance: BEVACIZUMAB-BVZR
     Dosage: 860 MG, EVERY 2 WEEKS
     Route: 042

REACTIONS (13)
  - Blood glucose fluctuation [Unknown]
  - Seizure [Unknown]
  - Visual acuity reduced [Unknown]
  - Abdominal distension [Unknown]
  - Ear discomfort [Unknown]
  - Cough [Unknown]
  - Taste disorder [Unknown]
  - Dry mouth [Unknown]
  - Asthenia [Unknown]
  - Motor dysfunction [Not Recovered/Not Resolved]
  - Paraesthesia [Unknown]
  - Blood pressure fluctuation [Unknown]
  - Drug ineffective [Unknown]

NARRATIVE: CASE EVENT DATE: 20240101
